FAERS Safety Report 24620448 (Version 3)
Quarter: 2025Q4

REPORT INFORMATION
  Report Type: Spontaneous
  Country: US (occurrence: US)
  Receive Date: 20241114
  Receipt Date: 20251103
  Transmission Date: 20260117
  Serious: No
  Sender: CURRAX PHARMACEUTICALS
  Company Number: CRAX2401805

PATIENT
  Age: 48 Year
  Sex: Female

DRUGS (5)
  1. CONTRAVE [Suspect]
     Active Substance: BUPROPION HYDROCHLORIDE\NALTREXONE HYDROCHLORIDE
     Indication: Product used for unknown indication
     Dosage: STRENGTH 90/8MG, WEEK 1 - 1 PILL IN AM
     Route: 048
     Dates: start: 20240806, end: 20240812
  2. CONTRAVE [Suspect]
     Active Substance: BUPROPION HYDROCHLORIDE\NALTREXONE HYDROCHLORIDE
     Dosage: STRENGTH: 90/8 MG, WEEK 2 - 1 PILL IN AM 1 PILL IN PM
     Route: 048
     Dates: start: 20240813, end: 20240819
  3. CONTRAVE [Suspect]
     Active Substance: BUPROPION HYDROCHLORIDE\NALTREXONE HYDROCHLORIDE
     Dosage: STRENGTH: 90/8 MG, WEEK 3 - 2 PILL IN AM 1 PILL IN PM
     Route: 048
     Dates: start: 20240820, end: 20240823
  4. B12 [Concomitant]
     Indication: Product used for unknown indication
     Dosage: UNK
     Dates: start: 2019
  5. VITAMIN D3 [Concomitant]
     Active Substance: CHOLECALCIFEROL
     Indication: Product used for unknown indication
     Dosage: UNK
     Dates: start: 2017

REACTIONS (3)
  - Visual impairment [Recovered/Resolved]
  - Headache [Recovered/Resolved]
  - Vomiting [Recovered/Resolved]

NARRATIVE: CASE EVENT DATE: 20240806
